FAERS Safety Report 7657744-8 (Version None)
Quarter: 2011Q3

REPORT INFORMATION
  Report Type: 
  Country: None (occurrence: None)
  Receive Date: 20110804
  Receipt Date: 20110706
  Transmission Date: 20111222
  Serious: No
  Sender: FDA-Public Use
  Company Number: US-BAYER-2011-059989

PATIENT
  Sex: Female

DRUGS (1)
  1. FINACEA [Suspect]
     Indication: ACNE CYSTIC
     Dosage: 1 DF, QD
     Route: 061

REACTIONS (1)
  - BURNING SENSATION [None]
